FAERS Safety Report 6558993-2 (Version None)
Quarter: 2010Q1

REPORT INFORMATION
  Report Type: 
  Country: None (occurrence: None)
  Receive Date: 20100129
  Receipt Date: 20100106
  Transmission Date: 20100710
  Serious: Yes (Other)
  Sender: FDA-Public Use
  Company Number: PHHY2010US00911

PATIENT
  Sex: Female

DRUGS (2)
  1. EXFORGE HCT [Suspect]
     Dosage: 320/10/UNK MG
     Route: 048
  2. DIPYRIDAMOLE [Concomitant]
     Dosage: 50 MG

REACTIONS (2)
  - ARTERIAL THERAPEUTIC PROCEDURE [None]
  - JOINT SWELLING [None]
